FAERS Safety Report 22315283 (Version 1)
Quarter: 2023Q2

REPORT INFORMATION
  Report Type: Spontaneous
  Country: US (occurrence: None)
  Receive Date: 20230511
  Receipt Date: 20230511
  Transmission Date: 20230722
  Serious: No
  Sender: FDA-Public Use
  Company Number: None

PATIENT
  Age: 16 Year
  Sex: Male
  Weight: 78.3 kg

DRUGS (2)
  1. CLONAZEPAM [Suspect]
     Active Substance: CLONAZEPAM
     Indication: Angelman^s syndrome
     Dosage: FREQUENCY : 3 TIMES A DAY;?
     Route: 049
     Dates: start: 20110718
  2. CLONAZEPAM [Suspect]
     Active Substance: CLONAZEPAM
     Indication: Generalised tonic-clonic seizure

REACTIONS (2)
  - Tremor [None]
  - Pruritus [None]

NARRATIVE: CASE EVENT DATE: 20230316
